FAERS Safety Report 12364561 (Version 1)
Quarter: 2016Q2

REPORT INFORMATION
  Report Type: Spontaneous
  Country: US (occurrence: US)
  Receive Date: 20160513
  Receipt Date: 20160513
  Transmission Date: 20160815
  Serious: No
  Sender: FDA-Public Use
  Company Number: US-WARNER CHILCOTT, LLC-1052125

PATIENT
  Age: 78 Year
  Sex: Female

DRUGS (8)
  1. TOPROL XL [Concomitant]
     Active Substance: METOPROLOL SUCCINATE
  2. ACTONEL [Suspect]
     Active Substance: RISEDRONATE SODIUM
     Route: 048
     Dates: start: 20141222, end: 201502
  3. ACTONEL [Suspect]
     Active Substance: RISEDRONATE SODIUM
     Indication: PROPHYLAXIS
     Route: 048
     Dates: end: 20151222
  4. LIPITOR [Concomitant]
     Active Substance: ATORVASTATIN CALCIUM
  5. ACTONEL [Suspect]
     Active Substance: RISEDRONATE SODIUM
     Indication: FRACTURE
     Route: 048
     Dates: end: 20151222
  6. VITAMIN B12 [Concomitant]
     Active Substance: CYANOCOBALAMIN
  7. ONE A DAY PLUS IRON [Concomitant]
  8. OMEPRAZOLE. [Concomitant]
     Active Substance: OMEPRAZOLE

REACTIONS (18)
  - Fatigue [Unknown]
  - Musculoskeletal pain [Unknown]
  - Pain [Unknown]
  - Malaise [Unknown]
  - Feeling abnormal [Unknown]
  - Stress [Unknown]
  - Asthenia [Unknown]
  - Arthropathy [Unknown]
  - Condition aggravated [Unknown]
  - Sciatica [Unknown]
  - Skin tightness [Unknown]
  - Arthralgia [Unknown]
  - Laziness [Unknown]
  - Decreased appetite [Not Recovered/Not Resolved]
  - Myalgia [Unknown]
  - Ankle fracture [Unknown]
  - Back pain [Unknown]
  - Weight decreased [Not Recovered/Not Resolved]

NARRATIVE: CASE EVENT DATE: 20141222
